FAERS Safety Report 4976024-2 (Version None)
Quarter: 2006Q2

REPORT INFORMATION
  Report Type: 
  Country: None (occurrence: None)
  Receive Date: 20060418
  Receipt Date: 20050706
  Transmission Date: 20061013
  Serious: Yes (Hospitalization)
  Sender: FDA-Public Use
  Company Number: US-MERCK-0507USA00953

PATIENT
  Age: 64 Year
  Sex: Female
  Weight: 58 kg

DRUGS (14)
  1. VIOXX [Suspect]
     Indication: OSTEOARTHRITIS
     Route: 048
     Dates: start: 19991101, end: 20040901
  2. VIOXX [Suspect]
     Indication: PSORIATIC ARTHROPATHY
     Route: 048
     Dates: start: 19991101, end: 20040901
  3. TYLENOL (CAPLET) [Concomitant]
     Route: 065
  4. ZOCOR [Concomitant]
     Route: 048
  5. TOPROL-XL [Concomitant]
     Route: 048
  6. DESYREL [Concomitant]
     Route: 048
  7. XANAX [Concomitant]
     Route: 065
  8. ESTRACE [Concomitant]
     Route: 065
  9. PROTONIX [Concomitant]
     Route: 065
  10. ALTACE [Concomitant]
     Route: 065
  11. FOLTX [Concomitant]
     Route: 048
  12. FAMVIR [Concomitant]
     Route: 048
  13. OMEPRAZOLE [Concomitant]
     Route: 048
  14. TRICOR [Concomitant]
     Route: 065

REACTIONS (3)
  - ACUTE MYOCARDIAL INFARCTION [None]
  - CORONARY ARTERY DISEASE [None]
  - HYPERTENSION [None]
